FAERS Safety Report 17417663 (Version 1)
Quarter: 2020Q1

REPORT INFORMATION
  Report Type: Report from Study
  Country: US (occurrence: US)
  Receive Date: 20200213
  Receipt Date: 20200213
  Transmission Date: 20200409
  Serious: Yes (Other)
  Sender: FDA-Public Use
  Company Number: US-JAZZ-2020-US-001752

PATIENT
  Age: 17 Year
  Sex: Female

DRUGS (10)
  1. MUPIROCIN. [Concomitant]
     Active Substance: MUPIROCIN
     Indication: PRODUCT USED FOR UNKNOWN INDICATION
  2. CLARITINE [Concomitant]
     Active Substance: LORATADINE
     Indication: PRODUCT USED FOR UNKNOWN INDICATION
  3. BENZOYL PEROXIDE. [Concomitant]
     Active Substance: BENZOYL PEROXIDE
     Indication: PRODUCT USED FOR UNKNOWN INDICATION
  4. XYREM [Suspect]
     Active Substance: SODIUM OXYBATE
     Indication: CATAPLEXY
     Dosage: 3.75 GRAM, BID
     Route: 048
     Dates: start: 201603, end: 201706
  5. XYREM [Suspect]
     Active Substance: SODIUM OXYBATE
     Indication: NARCOLEPSY
     Dosage: 1 GRAM, BID
     Route: 048
     Dates: start: 201210, end: 201410
  6. ADDERALL [Suspect]
     Active Substance: AMPHETAMINE ASPARTATE\AMPHETAMINE SULFATE\DEXTROAMPHETAMINE SACCHARATE\DEXTROAMPHETAMINE SULFATE
     Indication: PRODUCT USED FOR UNKNOWN INDICATION
  7. ELIDEL [Concomitant]
     Active Substance: PIMECROLIMUS
     Indication: PRODUCT USED FOR UNKNOWN INDICATION
  8. CLOBETASOL [Concomitant]
     Active Substance: CLOBETASOL
     Indication: PRODUCT USED FOR UNKNOWN INDICATION
  9. XYREM [Suspect]
     Active Substance: SODIUM OXYBATE
     Dosage: 2.25 GRAM, BID
     Route: 048
     Dates: start: 202001
  10. TRIAMCINOLONE [Concomitant]
     Active Substance: TRIAMCINOLONE
     Indication: PRODUCT USED FOR UNKNOWN INDICATION

REACTIONS (6)
  - Decreased appetite [Not Recovered/Not Resolved]
  - Constipation [Unknown]
  - Dizziness [Unknown]
  - Inappropriate schedule of product administration [Unknown]
  - Haematochezia [Unknown]
  - Enuresis [Unknown]

NARRATIVE: CASE EVENT DATE: 202002
